FAERS Safety Report 25771392 (Version 1)
Quarter: 2025Q3

REPORT INFORMATION
  Report Type: Spontaneous
  Country: US (occurrence: US)
  Receive Date: 20250908
  Receipt Date: 20250908
  Transmission Date: 20251020
  Serious: No
  Sender: DOMPE FARMACEUTICI
  Company Number: US-FARMAPROD-202504-1319

PATIENT
  Sex: Female

DRUGS (24)
  1. OXERVATE [Suspect]
     Active Substance: CENEGERMIN-BKBJ
     Indication: Neurotrophic keratopathy
     Route: 047
     Dates: start: 20250411
  2. FERROUS SULFATE [Concomitant]
     Active Substance: FERROUS SULFATE
  3. MULTIVITAMINS WITH FLUORIDE [ASCORBIC ACID;CYANOCOBALAMIN;ERGOCALCIFER [Concomitant]
  4. GREEN TEA EXTRACT [CAMELLIA SINENSIS LEAF] [Concomitant]
  5. NAPROXEN SODIUM [Concomitant]
     Active Substance: NAPROXEN SODIUM
  6. TYLENOL EXTRA STRENGTH [Concomitant]
     Active Substance: ACETAMINOPHEN
  7. BIOTIN [Concomitant]
     Active Substance: BIOTIN
  8. SUPER B COMPLEX [ASCORBIC ACID;BIOTIN;CALCIUM PANTOTHENATE;CHOLINE BIT [Concomitant]
  9. CALCIUM;MAGNESIUM;ZINC [Concomitant]
  10. ASPIRIN [Concomitant]
     Active Substance: ASPIRIN
  11. MECLIZINE HYDROCHLORIDE [Concomitant]
     Active Substance: MECLIZINE HYDROCHLORIDE
  12. SENOKOT [Concomitant]
     Active Substance: SENNOSIDES
  13. COPPER [Concomitant]
     Active Substance: COPPER
  14. CYSTINE [Concomitant]
     Active Substance: CYSTINE
  15. MINERALS\VITAMINS [Concomitant]
     Active Substance: MINERALS\VITAMINS
  16. ZINC [Concomitant]
     Active Substance: ZINC
  17. VITAMIN D3 [Concomitant]
     Active Substance: CHOLECALCIFEROL
  18. VITAMIN C [Concomitant]
     Active Substance: ASCORBIC ACID
  19. TIZANIDINE HYDROCHLORIDE [Concomitant]
     Active Substance: TIZANIDINE HYDROCHLORIDE
  20. OMEPRAZOLE [Concomitant]
     Active Substance: OMEPRAZOLE
  21. LYSINE [Concomitant]
     Active Substance: LYSINE
  22. IBANDRONATE SODIUM [Concomitant]
     Active Substance: IBANDRONATE SODIUM
  23. ERYTHROMYCIN [Concomitant]
     Active Substance: ERYTHROMYCIN
  24. PRED FORTE [Concomitant]
     Active Substance: PREDNISOLONE ACETATE

REACTIONS (2)
  - Eye pain [Unknown]
  - Vision blurred [Unknown]
